FAERS Safety Report 13425783 (Version 1)
Quarter: 2017Q2

REPORT INFORMATION
  Report Type: Spontaneous
  Country: US (occurrence: US)
  Receive Date: 20170411
  Receipt Date: 20170411
  Transmission Date: 20170830
  Serious: No
  Sender: FDA-Public Use
  Company Number: US-JNJFOC-20170202895

PATIENT
  Sex: Female
  Weight: 77.11 kg

DRUGS (4)
  1. FENTANYL. [Suspect]
     Active Substance: FENTANYL
     Indication: SPINAL FRACTURE
     Route: 062
     Dates: start: 2014
  2. FENTANYL. [Suspect]
     Active Substance: FENTANYL
     Indication: SPINAL FRACTURE
     Route: 062
  3. DURAGESIC [Suspect]
     Active Substance: FENTANYL
     Indication: SPINAL FRACTURE
     Dosage: SERIAL NUMBER: 100000144841
     Route: 062
  4. FENTANYL. [Suspect]
     Active Substance: FENTANYL
     Indication: SPINAL FRACTURE
     Route: 062
     Dates: start: 2010

REACTIONS (4)
  - Product adhesion issue [Unknown]
  - Poor quality drug administered [Unknown]
  - Wrong technique in product usage process [Unknown]
  - Exposure during pregnancy [Unknown]
